FAERS Safety Report 6607833-1 (Version None)
Quarter: 2010Q1

REPORT INFORMATION
  Report Type: 
  Country: None (occurrence: None)
  Receive Date: 20100225
  Receipt Date: 20100225
  Transmission Date: 20100710
  Serious: Yes (Other)
  Sender: FDA-Public Use
  Company Number: None

PATIENT
  Age: 65 Year
  Sex: Male
  Weight: 145.151 kg

DRUGS (4)
  1. JANUVIA [Suspect]
     Indication: DIABETES MELLITUS
     Dosage: 1 DAILY 100 1 DAILY ORAL
     Route: 048
     Dates: start: 20090901, end: 20091201
  2. DIOVAN [Concomitant]
  3. SIMIVASTIN [Concomitant]
  4. METFORMIN HYDROCHLORIDE [Concomitant]

REACTIONS (2)
  - ANXIETY [None]
  - PANIC ATTACK [None]
